FAERS Safety Report 8935085 (Version 2)
Quarter: 2013Q1

REPORT INFORMATION
  Report Type: Spontaneous
  Country: US (occurrence: US)
  Receive Date: 20121129
  Receipt Date: 20130122
  Transmission Date: 20140127
  Serious: Yes (Other)
  Sender: FDA-Public Use
  Company Number: US-PFIZER INC-2012298457

PATIENT
  Age: 67 Year
  Sex: Female

DRUGS (2)
  1. DILANTIN-125 [Suspect]
     Indication: CONVULSION
     Dosage: UNK
     Route: 048
  2. PHENOBARBITAL [Concomitant]
     Dosage: UNK

REACTIONS (3)
  - Pharyngitis streptococcal [Unknown]
  - Dysphonia [Unknown]
  - Anticonvulsant drug level decreased [Unknown]
